FAERS Safety Report 21314503 (Version 2)
Quarter: 2022Q3

REPORT INFORMATION
  Report Type: Spontaneous
  Country: US (occurrence: US)
  Receive Date: 20220909
  Receipt Date: 20220913
  Transmission Date: 20221027
  Serious: Yes (Other)
  Sender: FDA-Public Use
  Company Number: US-PFIZER INC-202201142347

PATIENT
  Age: 78 Year
  Sex: Female

DRUGS (2)
  1. COVID-19 VACCINE NOS [Suspect]
     Active Substance: COVID-19 VACCINE NOS
     Indication: COVID-19 immunisation
     Dosage: DOSE 3 (BOOSTER), SINGLE
  2. XELJANZ [Suspect]
     Active Substance: TOFACITINIB CITRATE
     Dosage: 5 MG, 2X/DAY (TWICE DAILY)

REACTIONS (1)
  - Cerebrovascular accident [Recovering/Resolving]
